FAERS Safety Report 14157291 (Version 2)
Quarter: 2017Q4

REPORT INFORMATION
  Report Type: Report from Study
  Country: JP (occurrence: JP)
  Receive Date: 20171103
  Receipt Date: 20171122
  Transmission Date: 20180321
  Serious: Yes (Death, Other)
  Sender: FDA-Public Use
  Company Number: JP-009507513-1710JPN003567J

PATIENT
  Age: 79 Year
  Sex: Male
  Weight: 64 kg

DRUGS (10)
  1. MAGMITT [Concomitant]
     Active Substance: MAGNESIUM OXIDE
     Dosage: 330 MG, TID
     Route: 048
     Dates: start: 20140815
  2. CANCIDAS [Concomitant]
     Active Substance: CASPOFUNGIN ACETATE
     Indication: SEPSIS
     Dosage: 70 MG, QD
     Route: 051
     Dates: start: 20161114, end: 20161114
  3. BAKTAR [Concomitant]
     Active Substance: SULFAMETHOXAZOLE\TRIMETHOPRIM
     Indication: PROPHYLAXIS
     Dosage: 1 DF, QD
     Route: 048
     Dates: start: 20140815
  4. PREDONINE [Concomitant]
     Active Substance: PREDNISOLONE
     Dosage: 20 MG, QD
     Route: 051
     Dates: start: 20161108, end: 20161119
  5. CANCIDAS [Concomitant]
     Active Substance: CASPOFUNGIN ACETATE
     Indication: SEPSIS
     Dosage: 50 MG, QD
     Route: 051
     Dates: start: 20161115, end: 20161201
  6. RENIVACE TABLETS 2.5 [Concomitant]
     Active Substance: ENALAPRIL MALEATE
     Dosage: 2.5 MG, QD
     Route: 048
     Dates: start: 20140815
  7. FAMOTIDINE. [Concomitant]
     Active Substance: FAMOTIDINE
     Indication: PROPHYLAXIS
     Dosage: 20 MG, QD
     Route: 048
     Dates: start: 20140815
  8. FLUCONAZOLE. [Concomitant]
     Active Substance: FLUCONAZOLE
     Indication: PROPHYLAXIS
     Dosage: 100 MG, QD
     Route: 048
     Dates: start: 20140815
  9. MEROPENEM. [Concomitant]
     Active Substance: MEROPENEM
     Indication: SEPSIS
     Dosage: 1 G, TID
     Route: 051
     Dates: start: 20161111
  10. CUBICIN [Suspect]
     Active Substance: DAPTOMYCIN
     Indication: SEPSIS
     Dosage: 6 MG/KG, QD
     Route: 041
     Dates: start: 20161114, end: 20161201

REACTIONS (4)
  - Acute myeloid leukaemia [Fatal]
  - Renal impairment [Not Recovered/Not Resolved]
  - C-reactive protein increased [Not Recovered/Not Resolved]
  - Drug ineffective [Unknown]

NARRATIVE: CASE EVENT DATE: 20161121
